FAERS Safety Report 4495720-7 (Version None)
Quarter: 2004Q4

REPORT INFORMATION
  Report Type: 
  Country: None (occurrence: None)
  Receive Date: 20041108
  Receipt Date: 20041019
  Transmission Date: 20050328
  Serious: Yes (Hospitalization, Other)
  Sender: FDA-Public Use
  Company Number: PHEH2004US11240

PATIENT
  Age: 77 Year
  Sex: Female

DRUGS (14)
  1. ZOMETA [Suspect]
     Dates: start: 20030912
  2. VINCRISTINE + ADRIAMYCIN + DEXAMETHASONE [Concomitant]
  3. CYTOXAN [Concomitant]
  4. DECADRON [Concomitant]
  5. THALIDOMIDE [Concomitant]
     Indication: MULTIPLE MYELOMA
     Dosage: 100 MG, QHS
     Dates: start: 20040301, end: 20040601
  6. EPOGEN [Concomitant]
     Dosage: 60,000 UNITS WEEKLY
  7. VELCADE [Concomitant]
  8. ZOFRAN [Concomitant]
  9. COMPAZINE [Concomitant]
  10. CLONIDINE HCL [Concomitant]
     Indication: HYPERTENSION
     Dosage: .2 MG, BID
  11. ADALAT [Concomitant]
     Indication: HYPERTENSION
     Dosage: 30 MG, QD
  12. XALATAN [Concomitant]
     Dosage: UNK, QD
  13. LASIX [Concomitant]
     Indication: DIURETIC EFFECT
     Dosage: 20 MG, QD
  14. LORTAB [Concomitant]
     Indication: PAIN
     Dosage: PRN

REACTIONS (8)
  - ASTHENIA [None]
  - BLOOD CREATININE INCREASED [None]
  - DEHYDRATION [None]
  - DYSARTHRIA [None]
  - HYPERCALCAEMIA [None]
  - MULTIPLE MYELOMA [None]
  - OEDEMA PERIPHERAL [None]
  - TRANSIENT ISCHAEMIC ATTACK [None]
